FAERS Safety Report 22389907 (Version 1)
Quarter: 2023Q2

REPORT INFORMATION
  Report Type: Spontaneous
  Country: US (occurrence: US)
  Receive Date: 20230531
  Receipt Date: 20230531
  Transmission Date: 20230721
  Serious: No
  Sender: FDA-Public Use
  Company Number: US-SA-SAC20230530000903

PATIENT
  Age: 83 Year
  Sex: Female
  Weight: 93.4 kg

DRUGS (12)
  1. DUPIXENT [Suspect]
     Active Substance: DUPILUMAB
     Indication: Dermatitis atopic
     Dosage: 300 MG, QOW
     Route: 065
     Dates: start: 202211
  2. VITAMIN D NOS [Concomitant]
     Active Substance: VITAMIN D NOS
  3. TRAMADOL HCL [Concomitant]
     Active Substance: TRAMADOL HYDROCHLORIDE
  4. EUCERIN [UREA] [Concomitant]
  5. AMLODIPINE BESYLATE [Concomitant]
     Active Substance: AMLODIPINE BESYLATE
  6. CALCIUM [Concomitant]
     Active Substance: CALCIUM
     Dosage: 500(1250) TAB CHEW
  7. XARELTO [Concomitant]
     Active Substance: RIVAROXABAN
  8. RETINOL [Concomitant]
     Active Substance: RETINOL
  9. ASPIRIN [Concomitant]
     Active Substance: ASPIRIN
  10. TYLENOL [Concomitant]
     Active Substance: ACETAMINOPHEN
  11. IRON [Concomitant]
     Active Substance: IRON
     Dosage: 159(45)MG TABLET ER
  12. MONTELUKAST SODIUM [Concomitant]
     Active Substance: MONTELUKAST SODIUM

REACTIONS (1)
  - Arthralgia [Unknown]
